FAERS Safety Report 4395141-1 (Version None)
Quarter: 2004Q3

REPORT INFORMATION
  Report Type: 
  Country: None (occurrence: None)
  Receive Date: 20040706
  Receipt Date: 20040624
  Transmission Date: 20050211
  Serious: Yes (Life-Threatening, Hospitalization)
  Sender: FDA-Public Use
  Company Number: 2004220637ES

PATIENT
  Age: 60 Year
  Sex: Female
  Weight: 50 kg

DRUGS (2)
  1. MEDROXYPROGESTERONE ACETATE [Suspect]
     Indication: MENOPAUSAL DISORDER
     Dosage: 5 MG, TID, ORAL
     Route: 048
     Dates: start: 19850601, end: 19980101
  2. ESTRADIOL [Suspect]
     Indication: MENOPAUSAL DISORDER
     Dosage: TWICE A WEEK, TRANSDERMAL
     Route: 062
     Dates: start: 19850101, end: 19980101

REACTIONS (1)
  - BREAST CANCER FEMALE [None]
